FAERS Safety Report 5789352-8 (Version None)
Quarter: 2008Q2

REPORT INFORMATION
  Report Type: 
  Country: None (occurrence: None)
  Receive Date: 20080626
  Receipt Date: 20080206
  Transmission Date: 20081010
  Serious: No
  Sender: FDA-Public Use
  Company Number: US-ASTRAZENECA-2008UW02627

PATIENT
  Sex: Female

DRUGS (4)
  1. PULMICORT RESPULES [Suspect]
     Route: 055
     Dates: start: 20071001
  2. OXYGEN [Concomitant]
  3. IPRATROPIUM BROMIDE [Concomitant]
  4. ALBUTEROL [Concomitant]

REACTIONS (2)
  - MEMORY IMPAIRMENT [None]
  - OXYGEN CONSUMPTION DECREASED [None]
